FAERS Safety Report 11030703 (Version 1)
Quarter: 2015Q2

REPORT INFORMATION
  Report Type: Spontaneous
  Country: IT (occurrence: IT)
  Receive Date: 20150415
  Receipt Date: 20150415
  Transmission Date: 20150821
  Serious: Yes (Hospitalization)
  Sender: FDA-Public Use
  Company Number: IT-TEVA-553798ACC

PATIENT
  Age: 72 Year
  Sex: Female

DRUGS (6)
  1. LYRICA - 75 MG CAPSULA RIGIDA [Concomitant]
     Indication: NEUROPATHY PERIPHERAL
     Dosage: 75 MG
     Route: 048
  2. DELORAZEPAM [Concomitant]
     Active Substance: DELORAZEPAM
     Indication: PRODUCT USED FOR UNKNOWN INDICATION
     Dosage: 30 GTT
     Route: 048
  3. CLARITHROMYCIN. [Suspect]
     Active Substance: CLARITHROMYCIN
     Indication: UPPER RESPIRATORY TRACT INFECTION
     Dosage: 1000 MILLIGRAM DAILY; 1000 MG DAILY
     Route: 048
     Dates: start: 20150216, end: 20150224
  4. EUTIROX - 50 MICROGRAMMI COMPRESSE [Concomitant]
     Indication: HYPOTHYROIDISM
     Dosage: 50 UG
     Route: 048
  5. CARDIOASPIRIN - 100 MG COMPRESSE GASTRORESISTENTI [Concomitant]
     Active Substance: ASPIRIN
     Indication: CEREBROVASCULAR ACCIDENT
     Dosage: 100 MG; GASTRO-RESISTANT TABLET
     Route: 048
  6. PANTORC - 20 MG CPR GASTRORESISTENTI [Concomitant]
     Indication: GASTRIC ULCER
     Dosage: 20 MG; GASTRO-RESISTANT TABLET
     Route: 048

REACTIONS (1)
  - Eczema [Recovering/Resolving]

NARRATIVE: CASE EVENT DATE: 20150222
